FAERS Safety Report 7788009-1 (Version None)
Quarter: 2011Q3

REPORT INFORMATION
  Report Type: 
  Country: None (occurrence: None)
  Receive Date: 20110927
  Receipt Date: 20110909
  Transmission Date: 20111222
  Serious: Yes (Hospitalization)
  Sender: FDA-Public Use
  Company Number: JPI-P-017004

PATIENT
  Sex: Female

DRUGS (6)
  1. XYREM [Suspect]
     Indication: SLEEP APNOEA SYNDROME
     Dosage: 4.5; 6 GM (2.25 GM, 2 IN 1 D), ORAL
     Route: 048
     Dates: start: 20110101, end: 20110101
  2. XYREM [Suspect]
     Indication: NARCOLEPSY
     Dosage: 4.5; 6 GM (2.25 GM, 2 IN 1 D), ORAL
     Route: 048
     Dates: start: 20110101, end: 20110101
  3. XYREM [Suspect]
     Indication: SLEEP APNOEA SYNDROME
     Dosage: 4.5; 6 GM (2.25 GM, 2 IN 1 D), ORAL
     Route: 048
     Dates: start: 20110803, end: 20110101
  4. XYREM [Suspect]
     Indication: NARCOLEPSY
     Dosage: 4.5; 6 GM (2.25 GM, 2 IN 1 D), ORAL
     Route: 048
     Dates: start: 20110803, end: 20110101
  5. XYREM [Suspect]
     Indication: SLEEP APNOEA SYNDROME
     Dosage: 4.5; 6 GM (2.25 GM, 2 IN 1 D), ORAL
     Route: 048
     Dates: start: 20110101
  6. XYREM [Suspect]
     Indication: NARCOLEPSY
     Dosage: 4.5; 6 GM (2.25 GM, 2 IN 1 D), ORAL
     Route: 048
     Dates: start: 20110101

REACTIONS (3)
  - DYSPNOEA [None]
  - THROAT TIGHTNESS [None]
  - LOSS OF CONSCIOUSNESS [None]
